FAERS Safety Report 4751692-9 (Version None)
Quarter: 2005Q3

REPORT INFORMATION
  Report Type: 
  Country: None (occurrence: None)
  Receive Date: 20050823
  Receipt Date: 20050823
  Transmission Date: 20060218
  Serious: Yes (Other)
  Sender: FDA-Public Use
  Company Number: None

PATIENT
  Sex: Male
  Weight: 81.6475 kg

DRUGS (2)
  1. NARDIL [Suspect]
     Indication: DEPRESSION
     Dosage: 90MG  DAILY PO
     Route: 048
     Dates: start: 20031225, end: 20050822
  2. NARDIL [Suspect]
     Indication: SOCIAL PHOBIA
     Dosage: 90MG  DAILY PO
     Route: 048
     Dates: start: 20031225, end: 20050822

REACTIONS (2)
  - DRUG INEFFECTIVE [None]
  - PHARMACEUTICAL PRODUCT COMPLAINT [None]
